FAERS Safety Report 4697630-9 (Version None)
Quarter: 2005Q2

REPORT INFORMATION
  Report Type: 
  Country: None (occurrence: None)
  Receive Date: 20050620
  Receipt Date: 20041122
  Transmission Date: 20051028
  Serious: Yes (Hospitalization, Other)
  Sender: FDA-Public Use
  Company Number: 200414849US

PATIENT
  Age: 81 Year
  Sex: Female
  Weight: 96.4 kg

DRUGS (9)
  1. LANTUS [Suspect]
     Indication: DIABETES MELLITUS
     Dosage: 16 U HS SC
     Route: 058
  2. LANTUS [Suspect]
     Indication: DIABETES MELLITUS
     Dosage: 20 U HS SC
     Route: 058
  3. HUMALOG [Concomitant]
  4. FOSAMAX [Concomitant]
  5. MAGNESIUM OXIDE [Concomitant]
  6. NORVASC [Concomitant]
  7. ALTACE [Concomitant]
  8. LATANOPROST (XALATAN) [Concomitant]
  9. MULTI-VITAMIN [Concomitant]

REACTIONS (6)
  - BLOOD GLUCOSE DECREASED [None]
  - BLOOD GLUCOSE INCREASED [None]
  - DRUG EFFECT INCREASED [None]
  - FATIGUE [None]
  - INCOHERENT [None]
  - KETOACIDOSIS [None]
